FAERS Safety Report 9224621 (Version 1)
Quarter: 2013Q2

REPORT INFORMATION
  Report Type: Spontaneous
  Country: US (occurrence: None)
  Receive Date: 20130409
  Receipt Date: 20130409
  Transmission Date: 20140414
  Serious: Yes (Hospitalization)
  Sender: FDA-Public Use
  Company Number: 2013US-004622

PATIENT
  Age: 64 Year
  Sex: Male
  Weight: 79 kg

DRUGS (13)
  1. OMONTYS (PEGINESATIDE) SOLUTION FOR INJECTION [Suspect]
     Indication: NEPHROGENIC ANAEMIA
     Route: 042
     Dates: start: 20130122, end: 20130122
  2. ALPRAZOLAM (ALPRAZOLAM) [Concomitant]
  3. HYDROCODONE (HYDROCODONE) [Concomitant]
  4. COUMADIN (WARFARIN SODIUM) [Concomitant]
  5. COUMADIN (WARFARIN SODIUM) [Concomitant]
  6. ASPIRIN (ACETYLSALICYLIC ACID) [Concomitant]
  7. LISINOPRIL (LISINOPRIL) [Concomitant]
  8. PREVACID (LANSOPRAZOLE) [Concomitant]
  9. PROMETHAZINE (PROMETHAZINE) [Concomitant]
  10. NEPHROCAPS (ASCORBIC ACID, BIOTIN, CYANOCOBALAMIN, FOLIC ACID, NICOTINAMIDE, PANTOTHENIC ACID, PYRODOXINE HYDROCHLORIDE, RIBOFLAVIN, THIAMINE HYDROCHLORIDE) [Concomitant]
  11. SOTALOL [Concomitant]
  12. RENVELA (SEVELAMER CARBONATE) [Concomitant]
  13. RENVELA (SEVELAMER CARBONATE) [Concomitant]

REACTIONS (7)
  - Bronchitis bacterial [None]
  - Pulmonary oedema [None]
  - Nausea [None]
  - Blood pressure increased [None]
  - Dialysis [None]
  - Blood potassium increased [None]
  - Blood chloride decreased [None]
